FAERS Safety Report 17290763 (Version 3)
Quarter: 2020Q1

REPORT INFORMATION
  Report Type: Spontaneous
  Country: GB (occurrence: GB)
  Receive Date: 20200121
  Receipt Date: 20200310
  Transmission Date: 20200409
  Serious: Yes (Hospitalization, Disabling)
  Sender: FDA-Public Use
  Company Number: GB-TEVA-2020-GB-1169978

PATIENT
  Age: 85 Year
  Sex: Female

DRUGS (5)
  1. DIAZEPAM. [Suspect]
     Active Substance: DIAZEPAM
     Indication: ANXIETY
     Dosage: 6 MILLIGRAM DAILY; THREE TIMES DAILY 2 MG
     Route: 048
  2. RANITIDINE. [Concomitant]
     Active Substance: RANITIDINE
  3. BETAHISTINE [Concomitant]
     Active Substance: BETAHISTINE
     Dosage: WHEN REQUIRED
  4. GLICLAZIDE [Suspect]
     Active Substance: GLICLAZIDE
     Indication: TYPE 2 DIABETES MELLITUS
     Dosage: 40 MG
     Route: 048
     Dates: start: 20190225
  5. BUPRENORPHINE. [Suspect]
     Active Substance: BUPRENORPHINE
     Dosage: 5 MICROGRAM
     Route: 062

REACTIONS (2)
  - Hypoglycaemia [Recovered/Resolved]
  - Fall [Recovered/Resolved]

NARRATIVE: CASE EVENT DATE: 20190225
